FAERS Safety Report 13239570 (Version 1)
Quarter: 2017Q1

REPORT INFORMATION
  Report Type: Spontaneous
  Country: US (occurrence: US)
  Receive Date: 20170216
  Receipt Date: 20170216
  Transmission Date: 20170428
  Serious: Yes (Other)
  Sender: FDA-Public Use
  Company Number: US-JNJFOC-20170211486

PATIENT
  Age: 53 Year
  Sex: Male
  Weight: 104.33 kg

DRUGS (1)
  1. REMICADE [Suspect]
     Active Substance: INFLIXIMAB
     Indication: PSORIATIC ARTHROPATHY
     Route: 042
     Dates: start: 2013

REACTIONS (2)
  - Upper respiratory tract infection [Not Recovered/Not Resolved]
  - Angina pectoris [Unknown]

NARRATIVE: CASE EVENT DATE: 201610
